FAERS Safety Report 12456634 (Version 1)
Quarter: 2016Q2

REPORT INFORMATION
  Report Type: Report from Study
  Country: US (occurrence: US)
  Receive Date: 20160610
  Receipt Date: 20160610
  Transmission Date: 20160815
  Serious: No
  Sender: FDA-Public Use
  Company Number: PHEH2016US014303

PATIENT
  Age: 69 Year
  Sex: Female

DRUGS (2)
  1. JADENU [Suspect]
     Active Substance: DEFERASIROX
     Dosage: 21 MG/KG, UNK
     Route: 048
     Dates: start: 20160510
  2. JADENU [Suspect]
     Active Substance: DEFERASIROX
     Indication: PRODUCT USED FOR UNKNOWN INDICATION
     Dosage: 14 MG/KG, UNK
     Route: 048
     Dates: start: 20160210

REACTIONS (1)
  - Serum ferritin increased [Unknown]

NARRATIVE: CASE EVENT DATE: 20160510
